FAERS Safety Report 8439444-X (Version None)
Quarter: 2012Q2

REPORT INFORMATION
  Report Type: 
  Country: None (occurrence: None)
  Receive Date: 20120615
  Receipt Date: 20120611
  Transmission Date: 20120825
  Serious: Yes (Other)
  Sender: FDA-Public Use
  Company Number: US-ALLERGAN-1206550US

PATIENT
  Age: 27 Year
  Sex: Female

DRUGS (1)
  1. LATISSE [Suspect]
     Indication: GROWTH OF EYELASHES
     Dosage: ,2 GTT, QHS, UNKNOWN START DATE
     Route: 061
     Dates: start: 20110101

REACTIONS (10)
  - OCULAR HYPERAEMIA [None]
  - FOREIGN BODY SENSATION IN EYES [None]
  - WRONG TECHNIQUE IN DRUG USAGE PROCESS [None]
  - EYE PAIN [None]
  - EYELID OEDEMA [None]
  - EYE IRRITATION [None]
  - HAIR GROWTH ABNORMAL [None]
  - LACRIMATION INCREASED [None]
  - EYELID PTOSIS [None]
  - SCLERAL HYPERAEMIA [None]
